FAERS Safety Report 6219295-7 (Version None)
Quarter: 2009Q2

REPORT INFORMATION
  Report Type: 
  Country: None (occurrence: None)
  Receive Date: 20090609
  Receipt Date: 20090526
  Transmission Date: 20091009
  Serious: Yes (Disabling, Other)
  Sender: FDA-Public Use
  Company Number: IE-MEDIMMUNE-MEDI-0008436

PATIENT
  Sex: Male
  Weight: 4.97 kg

DRUGS (1)
  1. SYNAGIS [Suspect]
     Indication: PREMATURE BABY

REACTIONS (2)
  - TONSILLITIS [None]
  - WHEEZING [None]
